FAERS Safety Report 7781703-8 (Version None)
Quarter: 2011Q3

REPORT INFORMATION
  Report Type: 
  Country: None (occurrence: None)
  Receive Date: 20110927
  Receipt Date: 20110922
  Transmission Date: 20111222
  Serious: Yes (Hospitalization)
  Sender: FDA-Public Use
  Company Number: US-GLAXOSMITHKLINE-A0843862A

PATIENT
  Age: 51 Year
  Sex: Female
  Weight: 166.4 kg

DRUGS (5)
  1. BENAZEPRIL HYDROCHLORIDE [Concomitant]
  2. AVANDIA [Suspect]
     Indication: TYPE 2 DIABETES MELLITUS
     Dosage: 4MG PER DAY
     Route: 048
     Dates: start: 20020101, end: 20070101
  3. HYDROCHLOROTHIAZIDE [Concomitant]
  4. GLYBURIDE [Concomitant]
  5. TRAMADOL HCL [Concomitant]

REACTIONS (3)
  - HEART RATE INCREASED [None]
  - AMNESIA [None]
  - CARDIAC FAILURE CONGESTIVE [None]
